FAERS Safety Report 24607833 (Version 1)
Quarter: 2024Q4

REPORT INFORMATION
  Report Type: Spontaneous
  Country: US (occurrence: None)
  Receive Date: 20241111
  Receipt Date: 20241111
  Transmission Date: 20250114
  Serious: Yes (Life-Threatening)
  Sender: Public
  Company Number: None

PATIENT
  Age: 43 Year
  Sex: Female
  Weight: 126 kg

DRUGS (19)
  1. TIRZEPATIDE [Suspect]
     Active Substance: TIRZEPATIDE
     Indication: Weight decreased
     Dosage: OTHER FREQUENCY : ONCE WEEKLY?
     Route: 030
  2. Adderall ER [Concomitant]
  3. ADDERALL [Concomitant]
     Active Substance: AMPHETAMINE ASPARTATE\AMPHETAMINE SULFATE\DEXTROAMPHETAMINE SACCHARATE\DEXTROAMPHETAMINE SULFATE
  4. XANAX [Concomitant]
  5. EFFEXOR [Concomitant]
  6. ZOLOFT [Concomitant]
  7. DEPAKOTE [Concomitant]
  8. Ambient [Concomitant]
  9. ZYPREXA [Concomitant]
  10. LEVOTHYROXINE [Concomitant]
  11. LIPITOR [Concomitant]
     Active Substance: ATORVASTATIN CALCIUM
  12. AMLODIPINE [Concomitant]
  13. ALBUTEROL [Concomitant]
     Active Substance: ALBUTEROL
  14. OMEPRAZOLE [Concomitant]
  15. NEXPLANON [Concomitant]
  16. Vitamin D [Concomitant]
  17. B12 [Concomitant]
  18. ZINC [Concomitant]
     Active Substance: ZINC
  19. Prenatal [Concomitant]

REACTIONS (3)
  - Suicidal ideation [None]
  - Suicide attempt [None]
  - Anxiety [None]

NARRATIVE: CASE EVENT DATE: 20241111
